FAERS Safety Report 15387519 (Version 2)
Quarter: 2018Q3

REPORT INFORMATION
  Report Type: Spontaneous
  Country: US (occurrence: US)
  Receive Date: 20180914
  Receipt Date: 20180928
  Transmission Date: 20181010
  Serious: Yes (Death)
  Sender: FDA-Public Use
  Company Number: US-PFIZER INC-2018367392

PATIENT
  Age: 41 Year
  Sex: Male

DRUGS (28)
  1. LACOSAMIDE. [Concomitant]
     Active Substance: LACOSAMIDE
     Indication: PARTIAL SEIZURES
     Dosage: UNK
  2. KETAMINE [Concomitant]
     Active Substance: KETAMINE
     Dosage: UNK (UP?TITRATION OF KETAMINE TO 4 MG/KG/HOUR)
     Route: 041
  3. SODIUM BICARBONATE. [Suspect]
     Active Substance: SODIUM BICARBONATE
     Indication: CARDIAC ARREST
     Dosage: UNK
  4. PHENOBARBITONE [PHENOBARBITAL] [Concomitant]
     Indication: PARTIAL SEIZURES
     Dosage: UNK
  5. CLONAZEPAM. [Concomitant]
     Active Substance: CLONAZEPAM
     Indication: PARTIAL SEIZURES
     Dosage: UNK
  6. CLOBAZAM [Concomitant]
     Active Substance: CLOBAZAM
     Indication: PARTIAL SEIZURES
     Dosage: UNK
  7. MIDAZOLAM [Concomitant]
     Active Substance: MIDAZOLAM HYDROCHLORIDE
     Indication: PARTIAL SEIZURES
     Dosage: UNK
     Route: 041
  8. KETAMINE [Concomitant]
     Active Substance: KETAMINE
     Dosage: UNK(3 TO 4 MG/KG/HOUR)
     Route: 041
  9. NITRAZEPAM [Concomitant]
     Active Substance: NITRAZEPAM
     Indication: PARTIAL SEIZURES
     Dosage: UNK
  10. KETAMINE [Concomitant]
     Active Substance: KETAMINE
     Dosage: UNK(RE?INITIATION OF KETAMINE AT 1.8 MG/KG/HOUR)
     Route: 041
  11. EPINEPHRINE. [Suspect]
     Active Substance: EPINEPHRINE
     Indication: CARDIAC ARREST
     Dosage: UNK
  12. VALPROIC ACID. [Concomitant]
     Active Substance: VALPROIC ACID
     Indication: PARTIAL SEIZURES
     Dosage: UNK
  13. TOPIRAMATE. [Concomitant]
     Active Substance: TOPIRAMATE
     Indication: PARTIAL SEIZURES
  14. PHENYTOIN. [Concomitant]
     Active Substance: PHENYTOIN
     Indication: PARTIAL SEIZURES
     Dosage: UNK
  15. LEVETIRACETAM. [Concomitant]
     Active Substance: LEVETIRACETAM
     Indication: PARTIAL SEIZURES
     Dosage: UNK
  16. SULTHIAME [Concomitant]
     Active Substance: SULTHIAME
     Indication: PARTIAL SEIZURES
     Dosage: UNK
  17. FOSPHENYTOIN [Concomitant]
     Active Substance: FOSPHENYTOIN
     Indication: PARTIAL SEIZURES
     Dosage: UNK
  18. GABAPENTIN. [Concomitant]
     Active Substance: GABAPENTIN
     Indication: PARTIAL SEIZURES
     Dosage: UNK
  19. PROPOFOL. [Concomitant]
     Active Substance: PROPOFOL
     Indication: PARTIAL SEIZURES
     Dosage: UNK
     Route: 041
  20. KETAMINE [Concomitant]
     Active Substance: KETAMINE
     Indication: ADJUVANT THERAPY
     Dosage: 3 MG/KG, UNK, (BOLUS OF 3 MG/KG OF KETAMINE)
     Route: 041
  21. KETAMINE [Concomitant]
     Active Substance: KETAMINE
     Dosage: UNK (INFUSION OF 1.5 MG/KG/HOUR)
     Route: 041
  22. KETAMINE [Concomitant]
     Active Substance: KETAMINE
     Dosage: UNK (7.2 MG/KG/HOUR)
     Route: 041
  23. OXCARBAZEPINE. [Concomitant]
     Active Substance: OXCARBAZEPINE
     Indication: PARTIAL SEIZURES
     Dosage: UNK
  24. CARBAMAZEPINE. [Concomitant]
     Active Substance: CARBAMAZEPINE
     Indication: PARTIAL SEIZURES
     Dosage: UNK
  25. KETAMINE [Concomitant]
     Active Substance: KETAMINE
     Dosage: UNK, (UP?TITRATED BY 1.8 MG/KG/HOUR EVERY FIVE MINUTES)
     Route: 041
  26. LIDOCAINE. [Concomitant]
     Active Substance: LIDOCAINE
     Indication: PARTIAL SEIZURES
     Dosage: UNK
     Route: 041
  27. KETAMINE [Concomitant]
     Active Substance: KETAMINE
     Dosage: UNK, (UP?TITRATING BY 0.5 MG/KG/HOUR)
     Route: 041
  28. KETAMINE [Concomitant]
     Active Substance: KETAMINE
     Dosage: UNK, (HALVED)

REACTIONS (1)
  - Drug ineffective [Fatal]
